FAERS Safety Report 25646395 (Version 2)
Quarter: 2025Q3

REPORT INFORMATION
  Report Type: Other
  Country: EU (occurrence: EU)
  Receive Date: 20250805
  Receipt Date: 20250812
  Transmission Date: 20251020
  Serious: Yes (Other)
  Sender: EMD SERONO INC
  Company Number: None

PATIENT
  Age: 55 Year
  Sex: Female
  Weight: 70 kg

DRUGS (3)
  1. LEVOTHYROXINE SODIUM [Suspect]
     Active Substance: LEVOTHYROXINE SODIUM
     Indication: Hypothyroidism
  2. PEMBROLIZUMAB [Suspect]
     Active Substance: PEMBROLIZUMAB
     Indication: Malignant melanoma
     Dosage: 200 MG (FLAT DOSE) 3-WEEKLY
  3. PEMBROLIZUMAB [Suspect]
     Active Substance: PEMBROLIZUMAB
     Indication: Lymphatic mapping

REACTIONS (5)
  - Immune-mediated hyperthyroidism [Unknown]
  - Immune-mediated thyroiditis [Unknown]
  - Primary adrenal insufficiency [Recovered/Resolved]
  - Adrenalitis [Unknown]
  - Immune-mediated hypothyroidism [Unknown]
